FAERS Safety Report 8195569-8 (Version None)
Quarter: 2012Q1

REPORT INFORMATION
  Report Type: 
  Country: None (occurrence: None)
  Receive Date: 20120308
  Receipt Date: 20120307
  Transmission Date: 20120608
  Serious: Yes (Other)
  Sender: FDA-Public Use
  Company Number: PHHY2012CH019649

PATIENT
  Age: 52 Year
  Sex: Male
  Weight: 76 kg

DRUGS (1)
  1. ZOLEDRONOC ACID [Suspect]
     Indication: OSTEOPOROSIS
     Dosage: 5 MG, UNK
     Route: 042
     Dates: start: 20120208

REACTIONS (3)
  - TRANSAMINASES INCREASED [None]
  - LIVER INJURY [None]
  - INFLUENZA LIKE ILLNESS [None]
